FAERS Safety Report 4714947-X (Version None)
Quarter: 2005Q3

REPORT INFORMATION
  Report Type: 
  Country: None (occurrence: None)
  Receive Date: 20050715
  Receipt Date: 20040421
  Transmission Date: 20060218
  Serious: Yes (Death, Hospitalization)
  Sender: FDA-Public Use
  Company Number: BE-JNJFOC-20040306599

PATIENT
  Age: 33 Year
  Sex: Male

DRUGS (1)
  1. CISAPRIDE [Suspect]
     Route: 065
     Dates: start: 20030508, end: 20040203

REACTIONS (2)
  - ACIDOSIS [None]
  - SEPTIC SHOCK [None]
